APPROVED DRUG PRODUCT: ESTRADIOL
Active Ingredient: ESTRADIOL
Strength: 10MCG
Dosage Form/Route: TABLET;VAGINAL
Application: A206388 | Product #001 | TE Code: AB
Applicant: TEVA PHARMACEUTICALS USA
Approved: Jul 21, 2017 | RLD: No | RS: No | Type: RX